FAERS Safety Report 6890850-4 (Version None)
Quarter: 2010Q3

REPORT INFORMATION
  Report Type: 
  Country: None (occurrence: None)
  Receive Date: 20100731
  Receipt Date: 20090401
  Transmission Date: 20110219
  Serious: No
  Sender: FDA-Public Use
  Company Number: US-PFIZER INC-2009157682

PATIENT
  Sex: Female
  Weight: 52.2 kg

DRUGS (7)
  1. LIPITOR [Suspect]
     Indication: BLOOD CHOLESTEROL INCREASED
     Dosage: 5 MG, 1X/DAY
     Dates: start: 20081116, end: 20081126
  2. IBANDRONATE SODIUM [Interacting]
     Indication: OSTEOPENIA
     Dosage: UNK
  3. LEVOTHYROXINE SODIUM [Concomitant]
     Indication: HYPOTHYROIDISM
     Dosage: UNK
  4. VESICARE [Concomitant]
     Indication: BLADDER IRRITATION
     Dosage: UNK
  5. POTASSIUM CHLORIDE [Concomitant]
     Dosage: UNK
  6. IRON [Concomitant]
     Dosage: UNK
  7. NEURONTIN [Concomitant]
     Indication: NEUROPATHY PERIPHERAL

REACTIONS (4)
  - DRUG INTERACTION [None]
  - HEAD DISCOMFORT [None]
  - MUSCLE SPASMS [None]
  - WRONG TECHNIQUE IN DRUG USAGE PROCESS [None]
